FAERS Safety Report 18387889 (Version 1)
Quarter: 2020Q4

REPORT INFORMATION
  Report Type: Spontaneous
  Country: HR (occurrence: HR)
  Receive Date: 20201015
  Receipt Date: 20201015
  Transmission Date: 20210114
  Serious: Yes (Other)
  Sender: FDA-Public Use
  Company Number: HR-JNJFOC-20201021770

PATIENT
  Sex: Male

DRUGS (9)
  1. FUROSEMIDE. [Concomitant]
     Active Substance: FUROSEMIDE
     Dosage: 40 MG
  2. DIGITALIS [Concomitant]
     Active Substance: DIGITALIS
  3. VERAPAMIL [Concomitant]
     Active Substance: VERAPAMIL HYDROCHLORIDE
  4. ATORVASTATIN [Concomitant]
     Active Substance: ATORVASTATIN
     Dosage: 40 MG
  5. BISOPROLOL [Concomitant]
     Active Substance: BISOPROLOL
     Dosage: 5 MG
  6. FUROSEMIDE. [Concomitant]
     Active Substance: FUROSEMIDE
     Dosage: 125 MG
  7. PANTOPRAZOLE [Concomitant]
     Active Substance: PANTOPRAZOLE
     Dosage: 40 MG
  8. XARELTO [Suspect]
     Active Substance: RIVAROXABAN
     Indication: ATRIAL FIBRILLATION
     Dosage: UNK
     Route: 048
     Dates: start: 201804
  9. KALINOR [POTASSIUM BICARBONATE;POTASSIUM CITRATE] [Concomitant]
     Active Substance: POTASSIUM BICARBONATE\POTASSIUM CITRATE

REACTIONS (8)
  - Diabetes mellitus [Unknown]
  - Rectal cancer [Unknown]
  - Anaemia [Unknown]
  - Anaemia [Unknown]
  - Atrial fibrillation [Unknown]
  - Transurethral bladder resection [Unknown]
  - Urosepsis [Unknown]
  - Pleural effusion [Unknown]

NARRATIVE: CASE EVENT DATE: 201805
